FAERS Safety Report 17861059 (Version 3)
Quarter: 2022Q1

REPORT INFORMATION
  Report Type: Report from Study
  Country: US (occurrence: US)
  Receive Date: 20200604
  Receipt Date: 20220329
  Transmission Date: 20220424
  Serious: No
  Sender: FDA-Public Use
  Company Number: US-SHIRE-US202018466

PATIENT
  Age: 44 Year
  Sex: Female

DRUGS (3)
  1. ICATIBANT [Suspect]
     Active Substance: ICATIBANT ACETATE
     Indication: Product used for unknown indication
     Dosage: 300 MILLIGRAM (30MG/3 ML), OTHER
     Route: 058
     Dates: start: 201912
  2. ICATIBANT [Suspect]
     Active Substance: ICATIBANT ACETATE
     Indication: Product used for unknown indication
     Dosage: 300 MILLIGRAM (30MG/3 ML), OTHER
     Route: 058
     Dates: start: 201912
  3. TAKHZYRO [Suspect]
     Active Substance: LANADELUMAB-FLYO
     Indication: Product used for unknown indication
     Dosage: 300MG (TAKHZYRO SDV 300MG/2ML)
     Route: 058
     Dates: start: 2022

REACTIONS (3)
  - Hypoaesthesia [Unknown]
  - Injection site pain [Unknown]
  - Product container issue [Unknown]

NARRATIVE: CASE EVENT DATE: 20191201
